FAERS Safety Report 9008848 (Version 1)
Quarter: 2013Q1

REPORT INFORMATION
  Report Type: Spontaneous
  Country: GB (occurrence: GB)
  Receive Date: 20130111
  Receipt Date: 20130111
  Transmission Date: 20140127
  Serious: Yes (Life-Threatening, Hospitalization, Disabling, Other)
  Sender: FDA-Public Use
  Company Number: GB-009507513-1301GBR003662

PATIENT
  Age: 21 Year
  Sex: Female
  Weight: 110.2 kg

DRUGS (2)
  1. IMPLANON [Suspect]
     Indication: CONTRACEPTION
     Dosage: UNK
     Route: 065
     Dates: start: 200610, end: 200907
  2. LEVOTHYROXINE SODIUM [Concomitant]

REACTIONS (3)
  - Syncope [Unknown]
  - Depression [Recovered/Resolved with Sequelae]
  - Weight increased [Recovered/Resolved with Sequelae]
